FAERS Safety Report 15415157 (Version 1)
Quarter: 2018Q3

REPORT INFORMATION
  Report Type: Spontaneous
  Country: JP (occurrence: JP)
  Receive Date: 20180921
  Receipt Date: 20180921
  Transmission Date: 20181010
  Serious: Yes (Hospitalization)
  Sender: FDA-Public Use
  Company Number: JP-IMPAX LABORATORIES, INC-2018-IPXL-03045

PATIENT
  Age: 80 Year
  Sex: Female

DRUGS (2)
  1. MIRTAZAPINE ODT [Suspect]
     Active Substance: MIRTAZAPINE
     Dosage: 45 MG, DAILY
     Route: 065
  2. MIRTAZAPINE ODT [Suspect]
     Active Substance: MIRTAZAPINE
     Indication: DEPRESSION
     Dosage: 7.5 MG, DAILY
     Route: 065

REACTIONS (1)
  - Restless legs syndrome [Recovered/Resolved]
